FAERS Safety Report 7346339-1 (Version None)
Quarter: 2011Q1

REPORT INFORMATION
  Report Type: 
  Country: None (occurrence: None)
  Receive Date: 20110311
  Receipt Date: 20110301
  Transmission Date: 20110831
  Serious: Yes (Disabling)
  Sender: FDA-Public Use
  Company Number: US-BAYER-2011-014303

PATIENT
  Sex: Male

DRUGS (3)
  1. NEXAVAR EDUCATION COMPAIGN IN US [Suspect]
     Dosage: 200 MG, UNK
     Dates: start: 20110225
  2. NEXAVAR EDUCATION COMPAIGN IN US [Suspect]
     Indication: HEPATIC NEOPLASM MALIGNANT
     Dosage: 400 MG, BID
     Dates: start: 20110203
  3. NEXAVAR EDUCATION COMPAIGN IN US [Suspect]
     Dosage: 2 IN AM AND 1 IN PM
     Dates: start: 20110210

REACTIONS (7)
  - MUSCULOSKELETAL STIFFNESS [None]
  - ABASIA [None]
  - SKIN EXFOLIATION [None]
  - PALMAR-PLANTAR ERYTHRODYSAESTHESIA SYNDROME [None]
  - PRURITUS [None]
  - PAIN IN EXTREMITY [None]
  - ARTHRALGIA [None]
